FAERS Safety Report 23252408 (Version 1)
Quarter: 2023Q4

REPORT INFORMATION
  Report Type: Report from Study
  Country: CA (occurrence: CA)
  Receive Date: 20231201
  Receipt Date: 20231201
  Transmission Date: 20240109
  Serious: Yes (Death, Hospitalization)
  Sender: FDA-Public Use
  Company Number: CA-ABBVIE-5475131

PATIENT
  Sex: Male

DRUGS (1)
  1. LUPRON DEPOT [Suspect]
     Active Substance: LEUPROLIDE ACETATE
     Indication: Prostate cancer
     Route: 065
     Dates: start: 20030101, end: 20231028

REACTIONS (3)
  - Hospitalisation [Unknown]
  - Staphylococcal infection [Unknown]
  - Death [Fatal]

NARRATIVE: CASE EVENT DATE: 20230101
